FAERS Safety Report 5282606-3 (Version None)
Quarter: 2007Q1

REPORT INFORMATION
  Report Type: 
  Country: None (occurrence: None)
  Receive Date: 20070326
  Receipt Date: 20070313
  Transmission Date: 20070707
  Serious: Yes (Hospitalization)
  Sender: FDA-Public Use
  Company Number: E3810-00743-SPO-US

PATIENT
  Age: 59 Year
  Sex: Female
  Weight: 145 kg

DRUGS (13)
  1. ACIPHEX [Suspect]
     Indication: GASTROOESOPHAGEAL REFLUX DISEASE
     Dosage: 20 MG, 1 IN 1 D, ORAL
     Route: 048
     Dates: start: 19670101
  2. DURAGESIC-100 [Suspect]
     Indication: BACK PAIN
     Dosage: 133.3333 MCG, 1 IN 18 HR
     Dates: start: 19670101
  3. BETASERON [Concomitant]
  4. LASIX [Concomitant]
  5. ESTRACE [Concomitant]
  6. ARICEPT [Concomitant]
  7. HYDROMORPHONE HCL [Concomitant]
  8. PHENOBARBITAL TAB [Concomitant]
  9. VERAPAMIL [Concomitant]
  10. PROZAC [Concomitant]
  11. ASPIRIN [Concomitant]
  12. LIPITOR [Concomitant]
  13. BACLOFEN [Concomitant]

REACTIONS (6)
  - FALL [None]
  - HIP FRACTURE [None]
  - HYPERTENSION [None]
  - HYPERTHYROIDISM [None]
  - LOWER LIMB FRACTURE [None]
  - WEIGHT DECREASED [None]
